FAERS Safety Report 11779524 (Version 7)
Quarter: 2016Q2

REPORT INFORMATION
  Report Type: Spontaneous
  Country: BE (occurrence: BE)
  Receive Date: 20151125
  Receipt Date: 20160502
  Transmission Date: 20160815
  Serious: Yes (Hospitalization)
  Sender: FDA-Public Use
  Company Number: BE-ABBVIE-15P-013-1505364-00

PATIENT
  Sex: Female

DRUGS (7)
  1. PROLOPA [Concomitant]
     Active Substance: BENSERAZIDE\LEVODOPA
     Dosage: DOSE STRENGTH: 200MG/50MG 5/DAY AS RESCUE MEDICATION
  2. DUODOPA [Suspect]
     Active Substance: CARBIDOPA\LEVODOPA
     Dosage: AM=0ML; CD=3.4ML/H FOR 16HRS; ED=2ML; ND=UNKNOWN/H FOR 8HRS
     Route: 050
     Dates: start: 20151124, end: 20151221
  3. DUODOPA [Suspect]
     Active Substance: CARBIDOPA\LEVODOPA
     Dosage: DOSES CONTINUOUSLY MONITORED AND ADAPTED.
     Route: 050
     Dates: end: 20150804
  4. DUODOPA [Suspect]
     Active Substance: CARBIDOPA\LEVODOPA
     Dosage: AM=0ML; CD=3.7ML/HR DURING 16HRS; ED=1.5ML; ND=3.4ML/HR DURING 8HRS
     Route: 050
     Dates: start: 20150804, end: 20151124
  5. PROLOPA [Concomitant]
     Active Substance: BENSERAZIDE\LEVODOPA
     Indication: PRODUCT USED FOR UNKNOWN INDICATION
     Dosage: DOSE STRENGTH: 200MG/50MG
  6. DUODOPA [Suspect]
     Active Substance: CARBIDOPA\LEVODOPA
     Indication: PARKINSON^S DISEASE
     Dosage: AM=0ML; CD=4ML/HR DURING 16HRS; ED=3ML; ND=3.5ML/HR DURING 8HRS
     Route: 050
     Dates: start: 20071030
  7. DUODOPA [Suspect]
     Active Substance: CARBIDOPA\LEVODOPA
     Dosage: AM=0ML; CD=3.7ML/H FOR 16HRS; ED=2ML; ND=3.4ML/H FOR 8HRS
     Route: 050
     Dates: start: 20151221

REACTIONS (7)
  - Restlessness [Unknown]
  - Crying [Unknown]
  - Stoma site hypergranulation [Not Recovered/Not Resolved]
  - Psychotic disorder [Unknown]
  - Hallucination, visual [Unknown]
  - Freezing phenomenon [Unknown]
  - Hallucination, auditory [Unknown]
